FAERS Safety Report 5260277-X (Version None)
Quarter: 2007Q1

REPORT INFORMATION
  Report Type: 
  Country: None (occurrence: None)
  Receive Date: 20070309
  Receipt Date: 20060619
  Transmission Date: 20070707
  Serious: No
  Sender: FDA-Public Use
  Company Number: US-GLAXOSMITHKLINE-A0609235A

PATIENT
  Age: 56 Year
  Sex: Female

DRUGS (1)
  1. EQUATE NICOTINE GUM 2MG, MINT [Suspect]
     Dates: start: 20060611, end: 20060614

REACTIONS (4)
  - CONTUSION [None]
  - EATING DISORDER [None]
  - MOUTH ULCERATION [None]
  - ORAL PAIN [None]
